FAERS Safety Report 8967702 (Version 1)
Quarter: 2012Q4

REPORT INFORMATION
  Report Type: Spontaneous
  Country: JP (occurrence: None)
  Receive Date: 20121210
  Receipt Date: 20121210
  Transmission Date: 20130627
  Serious: Yes (Other)
  Sender: FDA-Public Use
  Company Number: FK201203703

PATIENT
  Age: 09 Year
  Sex: Male

DRUGS (4)
  1. LEVETIRACETAM [Suspect]
     Indication: CONVULSION
     Dosage: 125 mg, Unknown
  2. LEVETIRACETAM [Suspect]
     Indication: CONVULSION
     Dosage: 250 mg, Unknown
  3. LEVETIRACETAM [Suspect]
     Indication: CONVULSION
     Dosage: 500 mg, Unknown
  4. LEVETIRACETAM [Suspect]
     Indication: CONVULSION
     Dosage: 750 mg, Unknown

REACTIONS (3)
  - Status epilepticus [None]
  - Somnolence [None]
  - Gait disturbance [None]
